FAERS Safety Report 4411692-5 (Version None)
Quarter: 2004Q3

REPORT INFORMATION
  Report Type: 
  Country: None (occurrence: None)
  Receive Date: 20040730
  Receipt Date: 20040722
  Transmission Date: 20050211
  Serious: Yes (Hospitalization)
  Sender: FDA-Public Use
  Company Number: PHNU2004DE02622

PATIENT
  Age: 60 Year
  Sex: Male

DRUGS (2)
  1. SANDIMMUNE [Suspect]
     Indication: RENAL TRANSPLANT
     Dosage: 125MG/DAY
     Dates: start: 20030101
  2. URBASON [Concomitant]

REACTIONS (7)
  - ABDOMINAL PAIN UPPER [None]
  - BILE OUTPUT ABNORMAL [None]
  - BLOOD ALKALINE PHOSPHATASE INCREASED [None]
  - ESCHERICHIA SEPSIS [None]
  - GAMMA-GLUTAMYLTRANSFERASE INCREASED [None]
  - SURGERY [None]
  - UROSEPSIS [None]
